FAERS Safety Report 4955336-2 (Version None)
Quarter: 2006Q1

REPORT INFORMATION
  Report Type: 
  Country: None (occurrence: None)
  Receive Date: 20060328
  Receipt Date: 20060315
  Transmission Date: 20060701
  Serious: Yes (Hospitalization)
  Sender: FDA-Public Use
  Company Number: FR-AMGEN-UK172608

PATIENT
  Age: 65 Year
  Sex: Female

DRUGS (7)
  1. KEPIVANCE [Suspect]
     Indication: PRE-EXISTING DISEASE
     Route: 042
     Dates: start: 20060211, end: 20060219
  2. ALKERAN [Concomitant]
     Route: 042
     Dates: start: 20060215, end: 20060215
  3. FORTUM [Concomitant]
     Route: 042
     Dates: start: 20060212, end: 20060212
  4. CIFLOX [Concomitant]
     Route: 042
     Dates: start: 20060212, end: 20060212
  5. VELCADE [Concomitant]
     Route: 042
     Dates: start: 20060211, end: 20060221
  6. AUGMENTIN '125' [Concomitant]
     Route: 042
     Dates: start: 20060213, end: 20060218
  7. BORTEZOMIB [Concomitant]
     Route: 065

REACTIONS (13)
  - BURNING SENSATION [None]
  - DYSAESTHESIA [None]
  - DYSGEUSIA [None]
  - ERYTHEMA [None]
  - HEADACHE [None]
  - OEDEMA GENITAL [None]
  - OEDEMA PERIPHERAL [None]
  - ORAL MUCOSAL DISCOLOURATION [None]
  - ORAL SOFT TISSUE DISORDER [None]
  - PARAESTHESIA OF GENITAL FEMALE [None]
  - PARAESTHESIA ORAL [None]
  - RASH PAPULAR [None]
  - TONGUE DISORDER [None]
